FAERS Safety Report 24707845 (Version 2)
Quarter: 2024Q4

REPORT INFORMATION
  Report Type: Spontaneous
  Country: JP (occurrence: JP)
  Receive Date: 20241206
  Receipt Date: 20241223
  Transmission Date: 20250115
  Serious: Yes (Life-Threatening, Hospitalization)
  Sender: EISAI
  Company Number: JP-Eisai-202411771_LEN-EC_P_1

PATIENT
  Sex: Female

DRUGS (2)
  1. LENVIMA [Suspect]
     Active Substance: LENVATINIB
     Indication: Endometrial cancer
     Dosage: 5 COURSES
     Route: 048
     Dates: start: 20240830, end: 20241112
  2. KEYTRUDA [Suspect]
     Active Substance: PEMBROLIZUMAB
     Indication: Endometrial cancer
     Dosage: 5 COURSES
     Route: 041
     Dates: start: 20240820, end: 20241112

REACTIONS (5)
  - Hyperthyroidism [Recovering/Resolving]
  - Altered state of consciousness [Recovering/Resolving]
  - Pneumonia [Recovering/Resolving]
  - Dehydration [Recovered/Resolved]
  - Renal impairment [Recovering/Resolving]

NARRATIVE: CASE EVENT DATE: 20241101
